FAERS Safety Report 7910137-8 (Version None)
Quarter: 2011Q4

REPORT INFORMATION
  Report Type: 
  Country: None (occurrence: None)
  Receive Date: 20111111
  Receipt Date: 20111102
  Transmission Date: 20120403
  Serious: Yes (Other)
  Sender: FDA-Public Use
  Company Number: PHHY2011TN97017

PATIENT
  Age: 73 Year
  Sex: Female

DRUGS (4)
  1. ETHAMBUTOL HYDROCHLORIDE [Suspect]
     Indication: PULMONARY TUBERCULOSIS
  2. RIFAMPICIN [Suspect]
     Indication: PULMONARY TUBERCULOSIS
  3. PYRAZINAMIDE [Suspect]
     Indication: PULMONARY TUBERCULOSIS
  4. ISONIAZID [Suspect]
     Indication: PULMONARY TUBERCULOSIS

REACTIONS (6)
  - DERMATITIS BULLOUS [None]
  - PRURITUS [None]
  - SKIN EXFOLIATION [None]
  - SKIN HYPERPIGMENTATION [None]
  - LICHENOID KERATOSIS [None]
  - RASH [None]
